FAERS Safety Report 16825533 (Version 1)
Quarter: 2019Q3

REPORT INFORMATION
  Report Type: Spontaneous
  Country: US (occurrence: US)
  Receive Date: 20190919
  Receipt Date: 20190919
  Transmission Date: 20191005
  Serious: No
  Sender: FDA-Public Use
  Company Number: US-JNJFOC-20190916074

PATIENT
  Age: 18 Year
  Sex: Male
  Weight: 77.18 kg

DRUGS (2)
  1. ZYRTEC [Suspect]
     Active Substance: CETIRIZINE HYDROCHLORIDE
     Indication: NASAL CONGESTION
     Route: 048
     Dates: start: 20190911
  2. ZYRTEC [Suspect]
     Active Substance: CETIRIZINE HYDROCHLORIDE
     Indication: MULTIPLE ALLERGIES
     Route: 048
     Dates: start: 20190904

REACTIONS (3)
  - Product use in unapproved indication [Unknown]
  - Expired product administered [Unknown]
  - Overdose [Unknown]

NARRATIVE: CASE EVENT DATE: 20190904
